FAERS Safety Report 9184971 (Version 3)
Quarter: 2013Q2

REPORT INFORMATION
  Report Type: Report from Study
  Country: US (occurrence: US)
  Receive Date: 20130325
  Receipt Date: 20130503
  Transmission Date: 20140414
  Serious: No
  Sender: FDA-Public Use
  Company Number: US-VERTEX PHARMACEUTICALS INC.-2013-003925

PATIENT
  Age: 65 Year
  Sex: Female
  Weight: 104 kg

DRUGS (13)
  1. VX-950 (TELAPREVIR) [Suspect]
     Indication: HEPATITIS C
     Dosage: 750 MG, TID
     Route: 048
     Dates: start: 20130314
  2. PEGASYS [Suspect]
     Indication: HEPATITIS C
     Dosage: 180 ?G, QW
     Route: 058
     Dates: start: 20130314
  3. RIBAVIRIN [Suspect]
     Indication: HEPATITIS C
     Dosage: 600 MG, BID
     Dates: start: 20130314
  4. RIBAVIRIN [Suspect]
     Dosage: 400 MG, BID
     Dates: start: 20130411
  5. RIBAVIRIN [Suspect]
     Dosage: 1000 MG, QD
     Dates: start: 20130419
  6. PRILOSEC [Concomitant]
     Dosage: 10 MG, UNK
  7. VITAMIN B12 [Concomitant]
     Dosage: 100 ?G, UNK
  8. FLAXSEED OIL [Concomitant]
     Dosage: 1000 MG, UNK
  9. PERCOCET [Concomitant]
     Dosage: 10-325 MG
  10. MULTICAPSULE [Concomitant]
  11. BABY ASPIRIN [Concomitant]
     Dosage: 81 MG, UNK
  12. HYDROCHLOROTHIAZIDE WITH TRIAMTERENE [Concomitant]
     Dosage: 25-50 MG
  13. L-LYSINE [Concomitant]
     Dosage: 500 MG, UNK

REACTIONS (4)
  - Irritability [Unknown]
  - Haemoglobin decreased [Recovered/Resolved]
  - Nausea [Not Recovered/Not Resolved]
  - Pruritus [Not Recovered/Not Resolved]
